FAERS Safety Report 8816028 (Version 1)
Quarter: 2012Q4

REPORT INFORMATION
  Report Type: 
  Country: US (occurrence: US)
  Receive Date: 20120928
  Receipt Date: 20120928
  Transmission Date: 20130627
  Serious: Yes (Other)
  Sender: FDA-Public Use
  Company Number: US-BAYER-2012-100500

PATIENT
  Age: 21 Year
  Sex: Female

DRUGS (7)
  1. YASMIN [Suspect]
  2. OCELLA [Suspect]
  3. LITHIUM [Concomitant]
     Dosage: 300 mg, UNK
  4. ZYPREXA [Concomitant]
  5. METRONIDAZOLE [Concomitant]
     Dosage: 375 mg, UNK
  6. CEPHALEXIN [Concomitant]
     Dosage: 500 mg, UNK
  7. CALMOSEPTINE [CALAMINE] [Concomitant]

REACTIONS (2)
  - Thrombosed varicose vein [None]
  - Deep vein thrombosis [None]
